FAERS Safety Report 21719151 (Version 1)
Quarter: 2022Q4

REPORT INFORMATION
  Report Type: Spontaneous
  Country: FR (occurrence: FR)
  Receive Date: 20221213
  Receipt Date: 20221213
  Transmission Date: 20230113
  Serious: Yes (Death)
  Sender: FDA-Public Use
  Company Number: None

PATIENT
  Age: 56 Year
  Sex: Male
  Weight: 69 kg

DRUGS (8)
  1. AMISULPRIDE [Suspect]
     Active Substance: AMISULPRIDE
     Indication: Schizophrenia
     Dosage: 150 MG,QD (50 MG LE MATIN ET 100 MG LE SOIR )
     Route: 048
  2. PANTOPRAZOLE [Suspect]
     Active Substance: PANTOPRAZOLE
     Indication: Prophylaxis against gastrointestinal ulcer
     Dosage: 20 MG,QD (20 MG AU COUCHER)
     Route: 048
  3. DOMPERIDONE [Suspect]
     Active Substance: DOMPERIDONE
     Indication: Prophylaxis of nausea and vomiting
     Dosage: 10 MG,QD (10 MG LE MATIN)
     Route: 048
  4. LOXAPINE [Suspect]
     Active Substance: LOXAPINE
     Indication: Schizophrenia
     Dosage: 4 DOSAGE FORM,QD (1 LE MATIN, 2 LE SOIR ET 1 AU COUCHER)
     Route: 048
  5. PALIPERIDONE PALMITATE [Suspect]
     Active Substance: PALIPERIDONE PALMITATE
     Indication: Schizophrenia
     Dosage: 150 MG (150 MG LE MATIN TOUS LES 28 JOURS)
     Route: 030
  6. PHLOROGLUCINOL [Suspect]
     Active Substance: PHLOROGLUCINOL
     Indication: Abdominal pain
     Dosage: 3 DOSAGE FORM, QD (1 CP X 3 PAR JOUR SI BESOIN)
     Route: 048
  7. TRIHEXYPHENIDYL HYDROCHLORIDE [Suspect]
     Active Substance: TRIHEXYPHENIDYL HYDROCHLORIDE
     Indication: Product used for unknown indication
     Dosage: 1 DOSAGE FORM,QD (1 LE MATIN)
     Route: 048
  8. GAVISCON [Suspect]
     Active Substance: ALUMINUM HYDROXIDE\MAGNESIUM CARBONATE
     Indication: Gastrooesophageal reflux prophylaxis
     Dosage: 3 DOSAGE FORM,QD (1 MATIN, MIDI ET SOIR)
     Route: 048

REACTIONS (1)
  - Choking [Fatal]

NARRATIVE: CASE EVENT DATE: 20220919
